FAERS Safety Report 9981268 (Version 3)
Quarter: 2014Q1

REPORT INFORMATION
  Report Type: Spontaneous
  Country: US (occurrence: None)
  Receive Date: 20140305
  Receipt Date: 20140327
  Transmission Date: 20141002
  Serious: Yes (Other)
  Sender: FDA-Public Use
  Company Number: 2014SA025409

PATIENT
  Age: 26 Year
  Sex: Female

DRUGS (1)
  1. MENTHOL [Suspect]
     Indication: DYSMENORRHOEA
     Dates: start: 20140221, end: 20140321

REACTIONS (7)
  - Chemical injury [None]
  - Blister [None]
  - Skin ulcer [None]
  - Secretion discharge [None]
  - Pain of skin [None]
  - Feeling hot [None]
  - Skin exfoliation [None]
